FAERS Safety Report 20641118 (Version 1)
Quarter: 2022Q1

REPORT INFORMATION
  Report Type: Spontaneous
  Country: TR (occurrence: TR)
  Receive Date: 20220327
  Receipt Date: 20220327
  Transmission Date: 20220423
  Serious: Yes (Other)
  Sender: FDA-Public Use
  Company Number: TR-NOVARTISPH-NVSC2021TR036164

PATIENT
  Age: 14 Year
  Sex: Female

DRUGS (3)
  1. TEGRETOL [Suspect]
     Active Substance: CARBAMAZEPINE
     Indication: Epilepsy
     Dosage: 10 MG
     Route: 048
  2. TEGRETOL [Suspect]
     Active Substance: CARBAMAZEPINE
     Dosage: 15 MG, TID
     Route: 048
  3. TEGRETOL [Suspect]
     Active Substance: CARBAMAZEPINE
     Dosage: 20 ML, BID
     Route: 048

REACTIONS (8)
  - Movement disorder [Unknown]
  - Seizure [Unknown]
  - Epilepsy [Unknown]
  - Gait inability [Unknown]
  - Inability to crawl [Unknown]
  - Muscle contractions involuntary [Unknown]
  - Product supply issue [Unknown]
  - Wrong technique in product usage process [Unknown]
